FAERS Safety Report 19389615 (Version 1)
Quarter: 2021Q2

REPORT INFORMATION
  Report Type: Spontaneous
  Country: US (occurrence: US)
  Receive Date: 20210608
  Receipt Date: 20210608
  Transmission Date: 20210717
  Serious: No
  Sender: FDA-Public Use
  Company Number: US-PFIZER INC-2021273599

PATIENT
  Age: 66 Year
  Sex: Female

DRUGS (1)
  1. BOSULIF [Suspect]
     Active Substance: BOSUTINIB MONOHYDRATE
     Indication: CHRONIC MYELOID LEUKAEMIA
     Dosage: 500 MG, 1X/DAY
     Route: 048
     Dates: start: 202101

REACTIONS (7)
  - Pruritus [Unknown]
  - Neoplasm progression [Unknown]
  - Decreased appetite [Unknown]
  - Rash [Unknown]
  - Pollakiuria [Unknown]
  - Fatigue [Unknown]
  - Diarrhoea [Recovered/Resolved]
